FAERS Safety Report 5875304-6 (Version None)
Quarter: 2008Q3

REPORT INFORMATION
  Report Type: 
  Country: None (occurrence: None)
  Receive Date: 20080904
  Receipt Date: 20080826
  Transmission Date: 20090109
  Serious: Yes (Hospitalization)
  Sender: FDA-Public Use
  Company Number: 2008BI020143

PATIENT
  Sex: Female

DRUGS (1)
  1. TYSABRI [Suspect]
     Indication: MULTIPLE SCLEROSIS
     Dosage: 300 MG; QM; IV
     Route: 042
     Dates: start: 20070101, end: 20080501

REACTIONS (7)
  - CELLULITIS [None]
  - INDURATION [None]
  - NEUROGENIC BLADDER [None]
  - NEUROGENIC BOWEL [None]
  - OEDEMA PERIPHERAL [None]
  - PARAPLEGIA [None]
  - PROGRESSIVE RELAPSING MULTIPLE SCLEROSIS [None]
